FAERS Safety Report 19209377 (Version 1)
Quarter: 2021Q2

REPORT INFORMATION
  Report Type: Spontaneous
  Country: US (occurrence: US)
  Receive Date: 20210503
  Receipt Date: 20210503
  Transmission Date: 20210717
  Serious: No
  Sender: FDA-Public Use
  Company Number: US-BEH-2021131010

PATIENT
  Sex: Female

DRUGS (2)
  1. HIZENTRA [Suspect]
     Active Substance: HUMAN IMMUNOGLOBULIN G
     Indication: HYPOGAMMAGLOBULINAEMIA
     Dosage: 14 GRAM, QW
     Route: 058
     Dates: start: 201808
  2. HIZENTRA [Suspect]
     Active Substance: HUMAN IMMUNOGLOBULIN G
     Indication: MIGRAINE
     Dosage: UNK
     Route: 058
     Dates: start: 20210313, end: 20210313

REACTIONS (7)
  - Injection site swelling [Unknown]
  - Recalled product administered [Recovering/Resolving]
  - Injection site pruritus [Unknown]
  - Off label use [Unknown]
  - No adverse event [Unknown]
  - Recalled product administered [Unknown]
  - Injection site pain [Recovering/Resolving]
